FAERS Safety Report 5504777-3 (Version None)
Quarter: 2007Q4

REPORT INFORMATION
  Report Type: 
  Country: None (occurrence: None)
  Receive Date: 20071031
  Receipt Date: 20071031
  Transmission Date: 20080405
  Serious: Yes (Other)
  Sender: FDA-Public Use
  Company Number: None

PATIENT
  Age: 5 Day
  Sex: Female

DRUGS (2)
  1. IBUPROFEN LYSINE [Suspect]
     Dosage: 11MG X1 DOSE IV SYRINGE IV PUMP 7MG X 1 (2ND DS D/CD)
     Route: 042
     Dates: start: 20070618
  2. IBUPROFEN LYSINE [Suspect]
     Dosage: 11MG X1 DOSE IV SYRINGE IV PUMP 7MG X 1 (2ND DS D/CD)
     Route: 042
     Dates: start: 20070619

REACTIONS (1)
  - UNEVALUABLE EVENT [None]
